FAERS Safety Report 8361834-4 (Version None)
Quarter: 2012Q2

REPORT INFORMATION
  Report Type: 
  Country: None (occurrence: None)
  Receive Date: 20120515
  Receipt Date: 20101206
  Transmission Date: 20120825
  Serious: No
  Sender: FDA-Public Use
  Company Number: US-TEVA-2010006339

PATIENT
  Sex: Female
  Weight: 52.21 kg

DRUGS (4)
  1. KLONOPIN [Concomitant]
  2. NUVIGIL [Suspect]
     Indication: SOMNOLENCE
     Dosage: 150 MILLIGRAM;
     Route: 048
     Dates: start: 20101201, end: 20101204
  3. REMERON [Concomitant]
  4. SYMBICORT [Concomitant]
     Dates: start: 20101122

REACTIONS (1)
  - NAUSEA [None]
